FAERS Safety Report 6155321-1 (Version None)
Quarter: 2009Q2

REPORT INFORMATION
  Report Type: 
  Country: None (occurrence: None)
  Receive Date: 20090413
  Receipt Date: 20090413
  Transmission Date: 20091009
  Serious: Yes (Other)
  Sender: FDA-Public Use
  Company Number: None

PATIENT
  Age: 40 Year
  Sex: Female

DRUGS (2)
  1. RISPERIDONE [Suspect]
     Indication: BIPOLAR DISORDER
     Dosage: 2 MG, 1 TAB ORAL
     Route: 048
     Dates: start: 20090401
  2. RISPERIDONE [Suspect]
     Indication: PSYCHOTIC DISORDER
     Dosage: 2 MG, 1 TAB ORAL
     Route: 048
     Dates: start: 20090401

REACTIONS (3)
  - ARTHRALGIA [None]
  - HEADACHE [None]
  - PRODUCT QUALITY ISSUE [None]
